FAERS Safety Report 11882774 (Version 3)
Quarter: 2016Q1

REPORT INFORMATION
  Report Type: Spontaneous
  Country: PL (occurrence: PL)
  Receive Date: 20151231
  Receipt Date: 20160107
  Transmission Date: 20160526
  Serious: Yes (Death, Hospitalization, Other)
  Sender: FDA-Public Use
  Company Number: PL-KADMON PHARMACEUTICALS, LLC-KAD201512-004658

PATIENT
  Age: 55 Year
  Sex: Female
  Weight: 55 kg

DRUGS (6)
  1. RIBAVIRIN. [Suspect]
     Active Substance: RIBAVIRIN
     Indication: HEPATITIS C
     Dosage: TABLET
     Route: 048
     Dates: start: 20151211, end: 20151221
  2. VIEKIRAX [Suspect]
     Active Substance: OMBITASVIR\PARITAPREVIR\RITONAVIR
     Indication: HEPATITIS C
     Dosage: TABLET
     Route: 048
     Dates: start: 20151211, end: 20151221
  3. LOSARTAN. [Concomitant]
     Active Substance: LOSARTAN
     Indication: HYPERTENSION
  4. BISOPROLOL [Concomitant]
     Active Substance: BISOPROLOL
     Indication: HYPERTENSION
  5. EXVIERA [Suspect]
     Active Substance: DASABUVIR
     Indication: HEPATITIS C
     Dosage: TABLET
     Route: 048
     Dates: start: 20151211, end: 20151221
  6. SPIRONOL 25 MG [Concomitant]
     Indication: HYPERTENSION

REACTIONS (21)
  - Coagulopathy [Unknown]
  - Leukopenia [Unknown]
  - Transaminases increased [Unknown]
  - Thrombocytopenia [Unknown]
  - Hypotension [Unknown]
  - Abdominal pain [Unknown]
  - Dyspepsia [Unknown]
  - Renal failure [Unknown]
  - Disseminated intravascular coagulation [Unknown]
  - Decreased appetite [Recovered/Resolved]
  - Anaemia [Unknown]
  - Pruritus [Unknown]
  - Nausea [Recovered/Resolved]
  - Cardiopulmonary failure [Fatal]
  - Hyperbilirubinaemia [Unknown]
  - General physical health deterioration [Unknown]
  - Myalgia [Unknown]
  - Acidosis [Unknown]
  - Gastrointestinal obstruction [Unknown]
  - Malaise [Recovered/Resolved]
  - Asthenia [Recovered/Resolved]

NARRATIVE: CASE EVENT DATE: 201512
